FAERS Safety Report 10380867 (Version 2)
Quarter: 2014Q3

REPORT INFORMATION
  Report Type: Spontaneous
  Country: US (occurrence: US)
  Receive Date: 20140813
  Receipt Date: 20140819
  Transmission Date: 20150326
  Serious: No
  Sender: FDA-Public Use
  Company Number: US-009507513-1408USA004253

PATIENT
  Age: 22 Year
  Sex: Female

DRUGS (1)
  1. NEXPLANON [Suspect]
     Active Substance: ETONOGESTREL
     Indication: CONTRACEPTION
     Dosage: 1 ROD
     Route: 059
     Dates: start: 20130325, end: 2014

REACTIONS (2)
  - Metrorrhagia [Recovered/Resolved]
  - Unintended pregnancy [Unknown]

NARRATIVE: CASE EVENT DATE: 20130325
